FAERS Safety Report 4553942-0 (Version None)
Quarter: 2005Q1

REPORT INFORMATION
  Report Type: 
  Country: None (occurrence: None)
  Receive Date: 20050118
  Receipt Date: 20050107
  Transmission Date: 20050727
  Serious: Yes (Hospitalization)
  Sender: FDA-Public Use
  Company Number: JP-ABBOTT-05P-087-0286268-00

PATIENT
  Age: 72 Year
  Sex: Female
  Weight: 40.1 kg

DRUGS (7)
  1. CLARITH [Suspect]
     Indication: UPPER RESPIRATORY TRACT INFECTION
     Route: 048
     Dates: start: 20030228
  2. CLARITH [Suspect]
     Indication: NASOPHARYNGITIS
     Route: 048
     Dates: start: 20040526, end: 20040529
  3. DICLOFENAC SODIUM [Suspect]
     Indication: UPPER RESPIRATORY TRACT INFLAMMATION
     Route: 048
     Dates: start: 20030225
  4. DICLOFENAC SODIUM [Suspect]
     Indication: NASOPHARYNGITIS
     Route: 048
     Dates: start: 20040526
  5. PL [Concomitant]
     Indication: NASOPHARYNGITIS
     Route: 048
     Dates: start: 20030225
  6. PL [Concomitant]
     Route: 048
     Dates: start: 20040526
  7. CHERRY BARK EXTRACT CODEINE PHOSPHATE [Concomitant]
     Indication: PYREXIA
     Route: 048
     Dates: start: 20030225

REACTIONS (9)
  - ANOREXIA [None]
  - DIALYSIS [None]
  - GENERALISED OEDEMA [None]
  - HEPATIC ENZYME INCREASED [None]
  - HYPERSENSITIVITY [None]
  - MALAISE [None]
  - NEPHRITIS INTERSTITIAL [None]
  - RENAL FAILURE ACUTE [None]
  - VOMITING [None]
